FAERS Safety Report 14354345 (Version 2)
Quarter: 2018Q1

REPORT INFORMATION
  Report Type: Report from Study
  Country: CN (occurrence: CN)
  Receive Date: 20180105
  Receipt Date: 20180122
  Transmission Date: 20180509
  Serious: Yes (Other)
  Sender: FDA-Public Use
  Company Number: CN-ROCHE-2045808

PATIENT
  Age: 57 Year
  Sex: Male
  Weight: 60.4 kg

DRUGS (7)
  1. METHYLPREDNISOLONE. [Concomitant]
     Active Substance: METHYLPREDNISOLONE
     Indication: RHEUMATOID ARTHRITIS
     Route: 048
     Dates: start: 20170810
  2. TEPRENONE [Concomitant]
     Active Substance: TEPRENONE
     Route: 065
     Dates: start: 20151019
  3. GLUCOSAMINE HYDROCHLORIDE [Concomitant]
     Active Substance: GLUCOSAMINE HYDROCHLORIDE
     Route: 065
     Dates: start: 20170810
  4. TOCILIZUMAB. [Suspect]
     Active Substance: TOCILIZUMAB
     Indication: RHEUMATOID ARTHRITIS
     Dosage: MOST RECENT DOSE OF BLINDED TOCILIZUMAB PRIOR TO AE ONSET WAS ON 08/DEC/2017
     Route: 058
     Dates: start: 20171124
  5. PLACEBO [Suspect]
     Active Substance: UNSPECIFIED INGREDIENT
     Indication: RHEUMATOID ARTHRITIS
     Dosage: MOST RECENT DOSE OF BLINDED METHOTREXATE PRIOR TO AE ONSET 17/DEC/2017
     Route: 048
     Dates: start: 20171126
  6. ALFACALCIDOL [Concomitant]
     Active Substance: ALFACALCIDOL
     Route: 065
     Dates: start: 20151009
  7. DIACEREIN [Concomitant]
     Active Substance: DIACEREIN
     Route: 065
     Dates: start: 20170810

REACTIONS (1)
  - Liver injury [Not Recovered/Not Resolved]

NARRATIVE: CASE EVENT DATE: 20171220
